FAERS Safety Report 5748539-0 (Version None)
Quarter: 2008Q2

REPORT INFORMATION
  Report Type: 
  Country: None (occurrence: None)
  Receive Date: 20080523
  Receipt Date: 20080513
  Transmission Date: 20081010
  Serious: Yes (Hospitalization)
  Sender: FDA-Public Use
  Company Number: FR-PFIZER INC-2008042061

PATIENT
  Age: 84 Year
  Sex: Female

DRUGS (13)
  1. LYRICA [Suspect]
     Dosage: DAILY DOSE:50MG
     Route: 048
     Dates: start: 20080305, end: 20080318
  2. COLCHICINE [Suspect]
     Route: 048
     Dates: start: 20080307, end: 20080318
  3. CLINDAMYCIN HCL [Suspect]
     Dosage: DAILY DOSE:2GRAM
     Route: 042
     Dates: start: 20080226, end: 20080318
  4. PIPERACILLIN AND TAZOBACTAM [Suspect]
     Dosage: DAILY DOSE:8GRAM
     Dates: start: 20080226, end: 20080313
  5. INSULIN [Concomitant]
  6. ACETYLSALICYLATE LYSINE [Concomitant]
  7. DILTIAZEM HYDROCHLORIDE [Concomitant]
  8. POTASSIUM CHLORIDE [Concomitant]
  9. TERBUTALINE SULFATE [Concomitant]
  10. IPRATROPIUM BROMIDE [Concomitant]
  11. FOLIC ACID [Concomitant]
  12. VITAMIN B1 AND B6 [Concomitant]
  13. FUROSEMIDE [Concomitant]

REACTIONS (1)
  - AGRANULOCYTOSIS [None]
